FAERS Safety Report 15488892 (Version 1)
Quarter: 2018Q4

REPORT INFORMATION
  Report Type: Spontaneous
  Country: US (occurrence: US)
  Receive Date: 20181011
  Receipt Date: 20181011
  Transmission Date: 20190205
  Serious: Yes (Hospitalization, Other)
  Sender: FDA-Public Use
  Company Number: US-009507513-1810USA000856

PATIENT

DRUGS (3)
  1. XALATAN [Suspect]
     Active Substance: LATANOPROST
  2. PRINIVIL [Suspect]
     Active Substance: LISINOPRIL
     Route: 048
  3. LIPITOR [Suspect]
     Active Substance: ATORVASTATIN CALCIUM

REACTIONS (6)
  - Cerebrovascular accident [Unknown]
  - Gait inability [Unknown]
  - Hypoaesthesia [Unknown]
  - Adverse reaction [Unknown]
  - Impaired work ability [Unknown]
  - Eye operation [Unknown]
